FAERS Safety Report 5366929-5 (Version None)
Quarter: 2007Q2

REPORT INFORMATION
  Report Type: 
  Country: None (occurrence: None)
  Receive Date: 20070622
  Receipt Date: 20070202
  Transmission Date: 20071010
  Serious: No
  Sender: FDA-Public Use
  Company Number: US-ASTRAZENECA-2007UW02268

PATIENT
  Age: 72 Year
  Sex: Female
  Weight: 54.4 kg

DRUGS (16)
  1. RHINOCORT [Suspect]
     Indication: NASAL DISORDER
     Route: 045
     Dates: start: 20050301
  2. RHINOCORT [Suspect]
     Indication: PHARYNGOLARYNGEAL PAIN
     Route: 045
     Dates: start: 20050301
  3. RHINOCORT [Suspect]
     Route: 045
  4. RHINOCORT [Suspect]
     Route: 045
  5. RHINOCORT [Suspect]
     Route: 045
  6. RHINOCORT [Suspect]
     Route: 045
  7. SYNTHROID [Concomitant]
  8. FOLIC ACID [Concomitant]
  9. DIOVAN [Concomitant]
  10. NORVASC [Concomitant]
  11. SUCRALFATE [Concomitant]
  12. TOPROL-XL [Concomitant]
     Route: 048
  13. FLORA-Q [Concomitant]
  14. ASPIRIN [Concomitant]
  15. ASCORBIC ACID [Concomitant]
  16. CALCIUM CHLORIDE [Concomitant]

REACTIONS (2)
  - DIZZINESS [None]
  - MEDICATION ERROR [None]
